FAERS Safety Report 16313532 (Version 2)
Quarter: 2020Q2

REPORT INFORMATION
  Report Type: Spontaneous
  Country: US (occurrence: US)
  Receive Date: 20190515
  Receipt Date: 20200413
  Transmission Date: 20200713
  Serious: Yes (Death, Disabling, Other)
  Sender: FDA-Public Use
  Company Number: US-MYLANLABS-2019M1046919

PATIENT
  Sex: Male

DRUGS (2)
  1. VALSARTAN TABLETS, USP [Suspect]
     Active Substance: VALSARTAN
     Indication: HYPERTENSION
     Dosage: UNK
     Dates: start: 20160302, end: 20170412
  2. VALSARTAN TABLETS, USP [Suspect]
     Active Substance: VALSARTAN
     Indication: HYPERTENSION
     Dosage: UNK
     Dates: start: 20150117, end: 20160111

REACTIONS (5)
  - Renal cancer metastatic [Fatal]
  - Recalled product administered [Unknown]
  - Hepatic cancer [Fatal]
  - Emotional distress [Unknown]
  - Mental disorder [Unknown]
